FAERS Safety Report 5374429-1 (Version None)
Quarter: 2007Q2

REPORT INFORMATION
  Report Type: 
  Country: None (occurrence: None)
  Receive Date: 20070629
  Receipt Date: 20070618
  Transmission Date: 20071010
  Serious: Yes (Hospitalization, Other)
  Sender: FDA-Public Use
  Company Number: JP-JNJFOC-20050502674

PATIENT
  Sex: Female
  Weight: 64 kg

DRUGS (14)
  1. REMICADE [Suspect]
     Route: 042
  2. REMICADE [Suspect]
     Route: 042
  3. REMICADE [Suspect]
     Indication: RHEUMATOID ARTHRITIS
     Route: 042
  4. RHEUMATREX [Concomitant]
     Route: 048
     Dates: start: 20011201
  5. RHEUMATREX [Concomitant]
     Indication: RHEUMATOID ARTHRITIS
     Route: 048
     Dates: start: 20011201
  6. LOXONIN [Concomitant]
     Route: 048
  7. LOXONIN [Concomitant]
     Indication: RHEUMATOID ARTHRITIS
     Dosage: 2T
     Route: 048
  8. LEUCOVORIN CALCIUM [Concomitant]
     Indication: RHEUMATOID ARTHRITIS
     Dosage: 1T
     Route: 048
     Dates: start: 20011201
  9. TAKEPRON [Concomitant]
     Route: 048
  10. NORVASC [Concomitant]
     Route: 048
  11. PREDONINE [Concomitant]
     Indication: RHEUMATOID ARTHRITIS
     Route: 048
  12. ADRENAL HORMONE PREPARATIONS [Concomitant]
     Indication: RHEUMATOID ARTHRITIS
  13. TAKEPRON [Concomitant]
     Dates: start: 20040312
  14. LOXONIN [Concomitant]
     Route: 048

REACTIONS (2)
  - ARTHRALGIA [None]
  - LYMPH NODE TUBERCULOSIS [None]
